FAERS Safety Report 14813916 (Version 1)
Quarter: 2018Q2

REPORT INFORMATION
  Report Type: Report from Study
  Country: US (occurrence: US)
  Receive Date: 20180426
  Receipt Date: 20180426
  Transmission Date: 20180711
  Serious: No
  Sender: FDA-Public Use
  Company Number: PHHY2018US051897

PATIENT
  Age: 59 Year
  Sex: Female

DRUGS (1)
  1. GILENYA [Suspect]
     Active Substance: FINGOLIMOD HYDROCHLORIDE
     Indication: MULTIPLE SCLEROSIS
     Dosage: UNK, QD
     Route: 048

REACTIONS (12)
  - Cafe au lait spots [Unknown]
  - Seborrhoeic keratosis [Unknown]
  - Spider naevus [Unknown]
  - Muscle spasms [Unknown]
  - Melanocytic naevus [Unknown]
  - Blood alkaline phosphatase increased [Unknown]
  - Aspartate aminotransferase increased [Unknown]
  - Depression [Recovered/Resolved]
  - Fibrous histiocytoma [Unknown]
  - Rash [Unknown]
  - Lentigo [Unknown]
  - Headache [Recovered/Resolved]

NARRATIVE: CASE EVENT DATE: 20180207
